FAERS Safety Report 11838602 (Version 2)
Quarter: 2017Q4

REPORT INFORMATION
  Report Type: Spontaneous
  Country: US (occurrence: US)
  Receive Date: 20151215
  Receipt Date: 20171226
  Transmission Date: 20180320
  Serious: No
  Sender: FDA-Public Use
  Company Number: US-SA-2015SA017962

PATIENT
  Age: 62 Year
  Sex: Female

DRUGS (3)
  1. THYROGEN [Suspect]
     Active Substance: THYROTROPIN ALFA
     Indication: DIAGNOSTIC PROCEDURE
     Dosage: LOT NO.: 30-472; EXP: 01-JUN-2016 DOSE:0.9 MILLIGRAM(S)/MILLILITRE
     Route: 065
     Dates: start: 20150209, end: 20150209
  2. THYROGEN [Suspect]
     Active Substance: THYROTROPIN ALFA
     Indication: DIAGNOSTIC PROCEDURE
     Dosage: LOT NO.: 30-472; EXP: 01-JUN-2016 DOSE:0.9 MILLIGRAM(S)/MILLILITRE
     Route: 065
     Dates: start: 20150209, end: 20150209
  3. SYNTHROID [Concomitant]
     Active Substance: LEVOTHYROXINE SODIUM
     Indication: THYROID CANCER
     Dates: start: 2009

REACTIONS (2)
  - Injection site pruritus [Recovered/Resolved]
  - Injection site erythema [Recovered/Resolved]

NARRATIVE: CASE EVENT DATE: 20150210
